FAERS Safety Report 5763753-6 (Version None)
Quarter: 2008Q2

REPORT INFORMATION
  Report Type: 
  Country: None (occurrence: None)
  Receive Date: 20080610
  Receipt Date: 20080606
  Transmission Date: 20081010
  Serious: Yes (Life-Threatening)
  Sender: FDA-Public Use
  Company Number: IT-ASTRAZENECA-2008SE02895

PATIENT
  Sex: Female

DRUGS (1)
  1. BUPIVACAINE HYDROCHLORIDE [Suspect]
     Indication: ILL-DEFINED DISORDER

REACTIONS (1)
  - DRUG EFFECT DECREASED [None]
